FAERS Safety Report 12372133 (Version 1)
Quarter: 2016Q2

REPORT INFORMATION
  Report Type: Spontaneous
  Country: US (occurrence: US)
  Receive Date: 20160516
  Receipt Date: 20160516
  Transmission Date: 20160815
  Serious: Yes (Hospitalization, Other)
  Sender: FDA-Public Use
  Company Number: US-PFIZER INC-2016251681

PATIENT
  Age: 88 Year
  Sex: Female

DRUGS (1)
  1. DILANTIN [Suspect]
     Active Substance: PHENYTOIN
     Indication: SEIZURE
     Dosage: UNK
     Dates: end: 2010

REACTIONS (3)
  - Seizure [Recovered/Resolved]
  - Drug interaction [Unknown]
  - Tunnel vision [Unknown]

NARRATIVE: CASE EVENT DATE: 2010
